FAERS Safety Report 9273807 (Version 1)
Quarter: 2013Q2

REPORT INFORMATION
  Report Type: Spontaneous
  Country: US (occurrence: US)
  Receive Date: 20130506
  Receipt Date: 20130506
  Transmission Date: 20140414
  Serious: No
  Sender: FDA-Public Use
  Company Number: US-AMGEN-USASP2013030588

PATIENT
  Age: 61 Year
  Sex: Female
  Weight: 95.24 kg

DRUGS (15)
  1. ENBREL [Suspect]
     Indication: PRODUCT USED FOR UNKNOWN INDICATION
     Dosage: UNK
  2. METHOTREXATE [Concomitant]
     Dosage: UNK
  3. FOLIC ACID [Concomitant]
     Dosage: UNK
  4. TRAZODONE [Concomitant]
     Dosage: UNK
  5. TRAMADOL [Concomitant]
     Dosage: UNK
  6. VOLTAREN                           /00372301/ [Concomitant]
     Dosage: UNK
  7. PRAMIPEXOLE [Concomitant]
     Dosage: UNK
  8. GABAPENTIN [Concomitant]
     Dosage: UNK
  9. CYMBALTA [Concomitant]
     Dosage: UNK
  10. CITRUCEL [Concomitant]
     Dosage: UNK
  11. HYDROCHLOROTHIAZIDE [Concomitant]
     Dosage: UNK
  12. CRESTOR [Concomitant]
     Dosage: UNK
  13. METOPROLOL [Concomitant]
     Dosage: UNK
  14. NEXIUM                             /01479302/ [Concomitant]
     Dosage: UNK
  15. CIMZIA [Concomitant]
     Dosage: UNK

REACTIONS (3)
  - Pain in extremity [Unknown]
  - Abdominal pain [Recovered/Resolved]
  - Swelling [Recovered/Resolved]
